FAERS Safety Report 5080177-8 (Version None)
Quarter: 2006Q3

REPORT INFORMATION
  Report Type: 
  Country: None (occurrence: None)
  Receive Date: 20060810
  Receipt Date: 20060726
  Transmission Date: 20061208
  Serious: Yes (Hospitalization, Other)
  Sender: FDA-Public Use
  Company Number: US_0511123456

PATIENT
  Age: 50 Year
  Sex: Male
  Weight: 122.7 kg

DRUGS (2)
  1. OLANZAPINE(OLANZAPINE UNKNOWN FORMULATION) TABLET [Suspect]
     Indication: DEPRESSION
     Dosage: 5 MG, ORAL
     Route: 048
     Dates: start: 20000101, end: 20041001
  2. NORTRIPTYLINE HCL [Concomitant]

REACTIONS (9)
  - BLOOD CHOLESTEROL INCREASED [None]
  - BLOOD TRIGLYCERIDES INCREASED [None]
  - DIABETES MELLITUS NON-INSULIN-DEPENDENT [None]
  - HYPERTENSION [None]
  - HYPONATRAEMIA [None]
  - INSULIN RESISTANCE [None]
  - MUSCLE SPASMS [None]
  - RENAL CELL CARCINOMA STAGE UNSPECIFIED [None]
  - WEIGHT INCREASED [None]
